FAERS Safety Report 8910927 (Version 1)
Quarter: 2012Q4

REPORT INFORMATION
  Report Type: 
  Country: SE (occurrence: SE)
  Receive Date: 20121115
  Receipt Date: 20121115
  Transmission Date: 20130627
  Serious: Yes (Hospitalization, Other)
  Sender: FDA-Public Use
  Company Number: SE-PFIZER INC-2012281149

PATIENT
  Age: 47 Year
  Sex: Male
  Weight: 102.5 kg

DRUGS (5)
  1. GENOTROPIN [Suspect]
     Dosage: 0.2 mg, 1x/day, 7 injections/week
     Route: 058
     Dates: start: 20101125
  2. DESMOPRESSIN [Concomitant]
     Indication: ANTIDIURETIC HORMONE DECREASED
     Dosage: UNK
     Dates: start: 20091118
  3. TESTOGEL [Concomitant]
     Indication: LUTEINISING HORMONE DEFICIENCY
     Dosage: UNK
     Dates: start: 20110503
  4. TESTOGEL [Concomitant]
     Indication: FOLLICLE-STIMULATING HORMONE DEFICIENCY
  5. TESTOGEL [Concomitant]
     Indication: TESTICULAR HYPOGONADISM

REACTIONS (1)
  - Head deformity [Unknown]
